FAERS Safety Report 5639217-7 (Version None)
Quarter: 2008Q1

REPORT INFORMATION
  Report Type: 
  Country: None (occurrence: None)
  Receive Date: 20080226
  Receipt Date: 20080221
  Transmission Date: 20080703
  Serious: Yes (Other)
  Sender: FDA-Public Use
  Company Number: JP-ASTRAZENECA-2008AP01314

PATIENT
  Age: 62 Year
  Sex: Female

DRUGS (1)
  1. TENORMIN [Suspect]
     Dosage: DOSE UNKNOWN
     Route: 048

REACTIONS (1)
  - FEMUR FRACTURE [None]
